FAERS Safety Report 9445526 (Version 1)
Quarter: 2013Q3

REPORT INFORMATION
  Report Type: Spontaneous
  Country: FR (occurrence: None)
  Receive Date: 20130805
  Receipt Date: 20130805
  Transmission Date: 20140515
  Serious: Yes (Death, Hospitalization)
  Sender: FDA-Public Use
  Company Number: 1754172

PATIENT
  Age: 77 Year
  Sex: Female

DRUGS (3)
  1. CARBOPLATIN [Suspect]
     Indication: LUNG CARCINOMA CELL TYPE UNSPECIFIED STAGE II
     Dosage: (NOT OTHERWISE SPECIFIED)
     Route: 042
     Dates: start: 20111024, end: 20111024
  2. ETOPOSIDE [Suspect]
     Indication: LUNG CARCINOMA CELL TYPE UNSPECIFIED STAGE II
     Dosage: (NOT OTHERWISE SPECIFIED)
     Route: 042
     Dates: start: 20111024, end: 20111026
  3. AUGMENTIN /00756801/ [Suspect]
     Indication: FEBRILE NEUTROPENIA
     Dosage: . 2 DAY,

REACTIONS (7)
  - Renal failure acute [None]
  - Bone marrow failure [None]
  - Blood culture positive [None]
  - Escherichia infection [None]
  - Pleural effusion [None]
  - Hepatomegaly [None]
  - Toxicity to various agents [None]
